FAERS Safety Report 21512364 (Version 1)
Quarter: 2022Q4

REPORT INFORMATION
  Report Type: Spontaneous
  Country: US (occurrence: US)
  Receive Date: 20221027
  Receipt Date: 20221027
  Transmission Date: 20230113
  Serious: No
  Sender: FDA-Public Use
  Company Number: US-MAYNE PHARMA-2022MYN001248

PATIENT
  Age: 22 Year
  Sex: Female

DRUGS (1)
  1. NEXTSTELLIS [Suspect]
     Active Substance: DROSPIRENONE\ESTETROL MONOHYDRATE
     Indication: Contraception
     Dosage: 3-14.2MG (TAKE 1 TABLET),QD
     Route: 048
     Dates: start: 20220803, end: 20220803

REACTIONS (1)
  - Hypersensitivity [Unknown]
